FAERS Safety Report 12121388 (Version 1)
Quarter: 2016Q1

REPORT INFORMATION
  Report Type: Spontaneous
  Country: US (occurrence: US)
  Receive Date: 20160226
  Receipt Date: 20160226
  Transmission Date: 20160526
  Serious: Yes (Hospitalization, Other)
  Sender: FDA-Public Use
  Company Number: US-TEVA-637450USA

PATIENT
  Age: 29 Year
  Sex: Female
  Weight: 62.2 kg

DRUGS (10)
  1. PROGRAF [Concomitant]
     Active Substance: TACROLIMUS\TACROLIMUS ANHYDROUS
     Indication: LIVER TRANSPLANT
     Dosage: 6 MILLIGRAM DAILY;
     Route: 048
  2. BC (ASPIRIN\CAFFEINE) [Concomitant]
     Active Substance: ASPIRIN\CAFFEINE
     Indication: SINUS DISORDER
  3. BC (ASPIRIN\CAFFEINE) [Concomitant]
     Active Substance: ASPIRIN\CAFFEINE
     Indication: NASOPHARYNGITIS
  4. PREDNISONE. [Concomitant]
     Active Substance: PREDNISONE
     Indication: LIVER TRANSPLANT
     Dosage: 3 MILLIGRAM DAILY;
     Route: 048
     Dates: start: 200505
  5. CEFALEXIN [Suspect]
     Active Substance: CEPHALEXIN
     Indication: WOUND
     Dosage: 2000 MILLIGRAM DAILY; EVERY 6 HOURS
     Route: 048
  6. ALKA SELTZER [Concomitant]
     Active Substance: ANHYDROUS CITRIC ACID\ASPIRIN\SODIUM BICARBONATE
     Indication: SINUS DISORDER
  7. RAPAMUNE [Concomitant]
     Active Substance: SIROLIMUS
     Indication: LIVER TRANSPLANT
     Dosage: 3 MILLIGRAM DAILY;
     Route: 048
  8. BC (ASPIRIN\CAFFEINE) [Concomitant]
     Active Substance: ASPIRIN\CAFFEINE
     Indication: HEADACHE
     Route: 046
     Dates: start: 20160126, end: 20160130
  9. ALKA SELTZER [Concomitant]
     Active Substance: ANHYDROUS CITRIC ACID\ASPIRIN\SODIUM BICARBONATE
     Indication: NASOPHARYNGITIS
     Dosage: TOOK 1 DOSE ON 25, 26, AND 27-JAN-016
     Route: 048
     Dates: start: 20160125, end: 20160127
  10. PREDNISONE. [Concomitant]
     Active Substance: PREDNISONE
     Indication: DEPRESSION

REACTIONS (2)
  - Cellulitis [Unknown]
  - Drug ineffective [Unknown]

NARRATIVE: CASE EVENT DATE: 20160202
